FAERS Safety Report 17582911 (Version 1)
Quarter: 2020Q1

REPORT INFORMATION
  Report Type: Other
  Country: US (occurrence: US)
  Receive Date: 20200325
  Receipt Date: 20200325
  Transmission Date: 20200409
  Serious: Yes (Hospitalization)
  Sender: FDA-Public Use
  Company Number: US-VERASTEM-2020-00011

PATIENT

DRUGS (2)
  1. COPIKTRA [Suspect]
     Active Substance: DUVELISIB
     Indication: B-CELL LYMPHOMA
     Dosage: 25 MG, BID
     Route: 048
     Dates: start: 20190806
  2. COPIKTRA [Suspect]
     Active Substance: DUVELISIB
     Indication: LUNG NEOPLASM MALIGNANT
     Dosage: 25 MG, BID
     Route: 048
     Dates: start: 20191013

REACTIONS (6)
  - Adenocarcinoma [Unknown]
  - Rib fracture [Not Recovered/Not Resolved]
  - Fall [Unknown]
  - Urinary tract infection [Unknown]
  - Influenza like illness [Unknown]
  - Asthenia [Unknown]

NARRATIVE: CASE EVENT DATE: 20200116
